FAERS Safety Report 23675240 (Version 2)
Quarter: 2024Q2

REPORT INFORMATION
  Report Type: Spontaneous
  Country: US (occurrence: US)
  Receive Date: 20240327
  Receipt Date: 20240417
  Transmission Date: 20240716
  Serious: No
  Sender: FDA-Public Use
  Company Number: US-JNJFOC-20240369278

PATIENT
  Age: 26 Year
  Sex: Female
  Weight: 78.996 kg

DRUGS (6)
  1. SPRAVATO [Suspect]
     Active Substance: ESKETAMINE
     Indication: Depression
     Dates: start: 20220824, end: 20240301
  2. TRINTELLIX [Concomitant]
     Active Substance: VORTIOXETINE HYDROBROMIDE
     Indication: Depression
     Route: 048
     Dates: start: 202209
  3. CLONIDINE HYDROCHLORIDE [Concomitant]
     Active Substance: CLONIDINE HYDROCHLORIDE
     Indication: Hypersomnia
     Route: 048
     Dates: start: 202402
  4. LORAZEPAM [Concomitant]
     Active Substance: LORAZEPAM
     Indication: Anxiety
     Route: 048
     Dates: start: 202302
  5. LAMOTRIGINE [Concomitant]
     Active Substance: LAMOTRIGINE
     Indication: Depressed mood
     Route: 048
     Dates: start: 202402
  6. OZEMPIC [Concomitant]
     Active Substance: SEMAGLUTIDE
     Indication: Nutritional supplementation
     Dosage: INJECTOR PEN
     Dates: start: 202311, end: 202402

REACTIONS (2)
  - Adverse event [Unknown]
  - Dissociation [Recovering/Resolving]

NARRATIVE: CASE EVENT DATE: 20240301
